FAERS Safety Report 7623722-8 (Version None)
Quarter: 2011Q3

REPORT INFORMATION
  Report Type: 
  Country: None (occurrence: None)
  Receive Date: 20110720
  Receipt Date: 20110714
  Transmission Date: 20111222
  Serious: Yes (Other)
  Sender: FDA-Public Use
  Company Number: US-GLAXOSMITHKLINE-A0933318A

PATIENT
  Age: 85 Year
  Sex: Male

DRUGS (1)
  1. VOTRIENT [Suspect]
     Indication: RENAL CANCER
     Dosage: 800MG PER DAY
     Route: 048

REACTIONS (7)
  - HAIR COLOUR CHANGES [None]
  - TRANSFUSION [None]
  - URINARY TRACT INFECTION [None]
  - HYPERKALAEMIA [None]
  - ALOPECIA [None]
  - PALMAR-PLANTAR ERYTHRODYSAESTHESIA SYNDROME [None]
  - PYREXIA [None]
